FAERS Safety Report 13980980 (Version 1)
Quarter: 2017Q3

REPORT INFORMATION
  Report Type: Spontaneous
  Country: US (occurrence: None)
  Receive Date: 20170915
  Receipt Date: 20170915
  Transmission Date: 20171128
  Serious: Yes (Hospitalization)
  Sender: FDA-Public Use
  Company Number: None

PATIENT
  Age: 73 Year
  Sex: Male

DRUGS (5)
  1. DIPHENHYDRAMINE. [Concomitant]
     Active Substance: DIPHENHYDRAMINE
  2. FAMOTIDINE. [Concomitant]
     Active Substance: FAMOTIDINE
  3. ONDANSETRON [Concomitant]
     Active Substance: ONDANSETRON
  4. PACLITAXEL. [Suspect]
     Active Substance: PACLITAXEL
     Indication: NEOPLASM MALIGNANT
     Route: 042
     Dates: start: 20170727, end: 20170727
  5. DEXAMETHASONE. [Concomitant]
     Active Substance: DEXAMETHASONE

REACTIONS (6)
  - Blood pressure decreased [None]
  - Tremor [None]
  - Somnolence [None]
  - Pyrexia [None]
  - Cough [None]
  - Seizure [None]

NARRATIVE: CASE EVENT DATE: 20170727
